FAERS Safety Report 23274101 (Version 1)
Quarter: 2023Q4

REPORT INFORMATION
  Report Type: Spontaneous
  Country: GB (occurrence: GB)
  Receive Date: 20231208
  Receipt Date: 20231208
  Transmission Date: 20240110
  Serious: Yes (Other)
  Sender: FDA-Public Use
  Company Number: GB-TAKEDA-2023TUS117814

PATIENT
  Age: 21 Year
  Sex: Male

DRUGS (3)
  1. INTUNIV [Suspect]
     Active Substance: GUANFACINE HYDROCHLORIDE
     Indication: Psychomotor hyperactivity
     Dosage: 7 MILLIGRAM
     Route: 065
  2. XANAX [Concomitant]
     Active Substance: ALPRAZOLAM
  3. ALPRAZOLAM [Concomitant]
     Active Substance: ALPRAZOLAM

REACTIONS (6)
  - Drug dependence [Unknown]
  - Abnormal behaviour [Unknown]
  - Product availability issue [Unknown]
  - Drug intolerance [Unknown]
  - Off label use [Unknown]
  - Product dose omission issue [Unknown]
